FAERS Safety Report 8090113-8 (Version None)
Quarter: 2012Q1

REPORT INFORMATION
  Report Type: 
  Country: None (occurrence: None)
  Receive Date: 20120129
  Receipt Date: 20111028
  Transmission Date: 20120608
  Serious: No
  Sender: FDA-Public Use
  Company Number: US-ABBOTT-11P-163-0870109-00

PATIENT
  Sex: Male
  Weight: 93.978 kg

DRUGS (6)
  1. VITAMIN D [Concomitant]
     Indication: VITAMIN SUPPLEMENTATION
  2. LEVOTHYROXINE SODIUM [Concomitant]
     Indication: HYPOTHYROIDISM
  3. CADUET [Concomitant]
     Indication: HYPERTENSION
  4. OMEGA 3 OIL [Concomitant]
     Indication: SUPPLEMENTATION THERAPY
  5. HUMIRA [Suspect]
     Indication: PSORIASIS
     Dates: start: 20110701, end: 20111001
  6. CADUET [Concomitant]
     Indication: BLOOD CHOLESTEROL INCREASED

REACTIONS (4)
  - PRURITUS [None]
  - DRUG INEFFECTIVE [None]
  - SKIN EXFOLIATION [None]
  - DRY SKIN [None]
